FAERS Safety Report 17841032 (Version 2)
Quarter: 2020Q3

REPORT INFORMATION
  Report Type: Spontaneous
  Country: US (occurrence: US)
  Receive Date: 20200529
  Receipt Date: 20200714
  Transmission Date: 20201103
  Serious: Yes (Other)
  Sender: FDA-Public Use
  Company Number: US-PFIZER INC-2020210397

PATIENT
  Age: 73 Year
  Sex: Female

DRUGS (3)
  1. IBRANCE [Suspect]
     Active Substance: PALBOCICLIB
     Indication: NEOPLASM MALIGNANT
  2. METFORMIN [Suspect]
     Active Substance: METFORMIN HYDROCHLORIDE
     Indication: DIABETES MELLITUS
     Dosage: UNK
  3. IBRANCE [Suspect]
     Active Substance: PALBOCICLIB
     Indication: BREAST CANCER FEMALE
     Dosage: 125 MG, CYCLIC (ONCE A DAY FOR 21 DAYS)
     Dates: end: 2020

REACTIONS (11)
  - Blindness [Unknown]
  - Eye disorder [Unknown]
  - Pruritus [Unknown]
  - Weight decreased [Unknown]
  - Eructation [Unknown]
  - Dehydration [Unknown]
  - Feeling abnormal [Unknown]
  - Hiccups [Unknown]
  - Deafness [Unknown]
  - Body height decreased [Unknown]
  - Decreased appetite [Unknown]
